FAERS Safety Report 6945612-6 (Version None)
Quarter: 2010Q3

REPORT INFORMATION
  Report Type: 
  Country: None (occurrence: None)
  Receive Date: 20100827
  Receipt Date: 20100820
  Transmission Date: 20110219
  Serious: Yes (Other)
  Sender: FDA-Public Use
  Company Number: PL-SANOFI-AVENTIS-2010SA033936

PATIENT
  Age: 41 Year
  Sex: Female
  Weight: 76 kg

DRUGS (5)
  1. ARAVA [Suspect]
     Indication: RHEUMATOID ARTHRITIS
     Route: 048
     Dates: start: 20100415, end: 20100524
  2. METHOTREXATE SODIUM [Concomitant]
     Route: 048
  3. METHYLPREDNISOLONE [Concomitant]
     Route: 048
  4. SORBIFER DURULES [Concomitant]
     Route: 048
     Dates: start: 20100401
  5. DETRALEX [Concomitant]
     Route: 048

REACTIONS (2)
  - ALANINE AMINOTRANSFERASE INCREASED [None]
  - ASPARTATE AMINOTRANSFERASE INCREASED [None]
